FAERS Safety Report 7680692-4 (Version None)
Quarter: 2011Q3

REPORT INFORMATION
  Report Type: 
  Country: None (occurrence: None)
  Receive Date: 20110812
  Receipt Date: 20110801
  Transmission Date: 20111222
  Serious: Yes (Hospitalization)
  Sender: FDA-Public Use
  Company Number: US-JNJFOC-20071000910

PATIENT
  Sex: Female
  Weight: 34.4 kg

DRUGS (2)
  1. INFLIXIMAB [Suspect]
     Route: 042
     Dates: start: 20070322
  2. INFLIXIMAB [Suspect]
     Indication: CROHN'S DISEASE
     Route: 042
     Dates: start: 20070508

REACTIONS (2)
  - OBSTRUCTION [None]
  - CROHN'S DISEASE [None]
